FAERS Safety Report 10908501 (Version 1)
Quarter: 2015Q1

REPORT INFORMATION
  Report Type: Spontaneous
  Country: US (occurrence: None)
  Receive Date: 20150309
  Receipt Date: 20150309
  Transmission Date: 20150721
  Serious: No
  Sender: FDA-Public Use
  Company Number: None

PATIENT
  Age: 59 Year
  Sex: Female
  Weight: 53.07 kg

DRUGS (12)
  1. ACETAMINOPHEN. [Concomitant]
     Active Substance: ACETAMINOPHEN
  2. FIBER PILLS [Concomitant]
  3. IBUPROFEN. [Concomitant]
     Active Substance: IBUPROFEN
  4. COGENTIN [Concomitant]
     Active Substance: BENZTROPINE MESYLATE
  5. NEURONTIN (PREVENTATIVE MEDS) [Concomitant]
  6. HALDOL (COCTAIL- ONLY AS NEEDED) [Concomitant]
  7. MAGNESIUM [Concomitant]
     Active Substance: MAGNESIUM
  8. DECADRON [Suspect]
     Active Substance: DEXAMETHASONE
     Indication: MIGRAINE
     Dosage: ONLY TAKE FOR 5 DA
     Route: 048
  9. NORFLEX ABORTIVE MED- AS NEEDED [Concomitant]
  10. ATIVAN [Concomitant]
     Active Substance: LORAZEPAM
  11. VERAPAMIL [Concomitant]
     Active Substance: VERAPAMIL HYDROCHLORIDE
  12. NORPRAMINE [Concomitant]
     Active Substance: DESIPRAMINE

REACTIONS (3)
  - Dyspepsia [None]
  - Chest pain [None]
  - No therapeutic response [None]

NARRATIVE: CASE EVENT DATE: 20150306
